FAERS Safety Report 9816561 (Version 2)
Quarter: 2014Q1

REPORT INFORMATION
  Report Type: Spontaneous
  Country: US (occurrence: US)
  Receive Date: 20140114
  Receipt Date: 20140205
  Transmission Date: 20141002
  Serious: No
  Sender: FDA-Public Use
  Company Number: US-009507513-1401USA005625

PATIENT
  Age: 44 Year
  Sex: Female
  Weight: 92.97 kg

DRUGS (8)
  1. OXYTROL FOR WOMEN [Suspect]
     Indication: HYPERTONIC BLADDER
     Dosage: UNK, UNKNOWN
     Route: 062
     Dates: start: 20131130, end: 20131220
  2. ATENOLOL [Concomitant]
     Indication: HYPERTENSION
     Dosage: UNK, UNKNOWN
  3. AMLODIPINE [Concomitant]
     Indication: HYPERTENSION
     Dosage: UNK, UNKNOWN
  4. BUPROPION HYDROCHLORIDE [Concomitant]
     Indication: DEPRESSION
     Dosage: UNK, UNKNOWN
  5. GABAPENTIN [Concomitant]
     Indication: PRODUCT USED FOR UNKNOWN INDICATION
     Dosage: UNK, UNKNOWN
  6. ETODOLAC [Concomitant]
     Indication: ARTHROPATHY
     Dosage: UNK, UNKNOWN
  7. VITAMIN D (UNSPECIFIED) [Concomitant]
     Indication: PRODUCT USED FOR UNKNOWN INDICATION
     Dosage: UNK, UNKNOWN
  8. PRUNELAX-CIRUELAX [Concomitant]
     Indication: PRODUCT USED FOR UNKNOWN INDICATION
     Dosage: UNK, UNKNOWN

REACTIONS (4)
  - Application site burn [Recovered/Resolved]
  - Application site rash [Recovered/Resolved]
  - Application site pruritus [Recovered/Resolved]
  - Application site erythema [Unknown]
